FAERS Safety Report 12552997 (Version 5)
Quarter: 2017Q2

REPORT INFORMATION
  Report Type: Report from Study
  Country: US (occurrence: US)
  Receive Date: 20160713
  Receipt Date: 20170410
  Transmission Date: 20170830
  Serious: Yes (Hospitalization)
  Sender: FDA-Public Use
  Company Number: US-ACTELION-A-US2016-132112

PATIENT
  Age: 66 Year
  Sex: Female

DRUGS (17)
  1. REMODULIN [Suspect]
     Active Substance: TREPROSTINIL
     Dosage: 65.8 NG/KG, PER MIN
     Route: 042
     Dates: start: 20161101
  2. SILDENAFIL. [Concomitant]
     Active Substance: SILDENAFIL
  3. DIGOXIN. [Concomitant]
     Active Substance: DIGOXIN
  4. TRAMADOL. [Concomitant]
     Active Substance: TRAMADOL
  5. ENALAPRIL [Concomitant]
     Active Substance: ENALAPRIL
  6. FUROSEMIDE. [Concomitant]
     Active Substance: FUROSEMIDE
  7. ZANTAC [Concomitant]
     Active Substance: RANITIDINE HYDROCHLORIDE
  8. CLONAZEPAM. [Concomitant]
     Active Substance: CLONAZEPAM
  9. METOLAZONE. [Concomitant]
     Active Substance: METOLAZONE
  10. KLOR-CON [Concomitant]
     Active Substance: POTASSIUM CHLORIDE
  11. REQUIP [Concomitant]
     Active Substance: ROPINIROLE HYDROCHLORIDE
  12. REMODULIN [Suspect]
     Active Substance: TREPROSTINIL
     Dosage: 68 NG/KG, UNK
     Route: 042
     Dates: start: 20151208
  13. REMODULIN [Suspect]
     Active Substance: TREPROSTINIL
     Dosage: UNK
     Route: 042
  14. TRACLEER [Suspect]
     Active Substance: BOSENTAN
     Indication: PULMONARY ARTERIAL HYPERTENSION
     Dosage: 125 MG, BID
     Route: 048
     Dates: start: 20020208
  15. REMODULIN [Suspect]
     Active Substance: TREPROSTINIL
     Indication: PRODUCT USED FOR UNKNOWN INDICATION
     Dosage: 7.3 NG/KG, PER MIN
     Route: 042
     Dates: start: 20170401
  16. SERTRALINE [Concomitant]
     Active Substance: SERTRALINE HYDROCHLORIDE
  17. COUMADIN [Concomitant]
     Active Substance: WARFARIN SODIUM

REACTIONS (14)
  - Catheter site pain [Not Recovered/Not Resolved]
  - Catheter management [Not Recovered/Not Resolved]
  - Pneumonia [Not Recovered/Not Resolved]
  - Catheter site swelling [Unknown]
  - Fatigue [Unknown]
  - Headache [Not Recovered/Not Resolved]
  - Catheter site infection [Not Recovered/Not Resolved]
  - Oedema [Not Recovered/Not Resolved]
  - Flushing [Not Recovered/Not Resolved]
  - Catheter site warmth [Not Recovered/Not Resolved]
  - Catheter site erythema [Not Recovered/Not Resolved]
  - Device related infection [Not Recovered/Not Resolved]
  - Incorrect dose administered [Not Recovered/Not Resolved]
  - Fluid retention [Not Recovered/Not Resolved]

NARRATIVE: CASE EVENT DATE: 20160315
